FAERS Safety Report 13802683 (Version 1)
Quarter: 2017Q3

REPORT INFORMATION
  Report Type: Spontaneous
  Country: US (occurrence: US)
  Receive Date: 20170727
  Receipt Date: 20170727
  Transmission Date: 20171127
  Serious: No
  Sender: FDA-Public Use
  Company Number: None

PATIENT
  Age: 63 Year
  Sex: Female

DRUGS (1)
  1. HARVONI [Suspect]
     Active Substance: LEDIPASVIR\SOFOSBUVIR

REACTIONS (5)
  - Pollakiuria [None]
  - Fatigue [None]
  - Blood cholesterol abnormal [None]
  - Feeling abnormal [None]
  - Alopecia [None]

NARRATIVE: CASE EVENT DATE: 20170727
